FAERS Safety Report 21019005 (Version 1)
Quarter: 2022Q2

REPORT INFORMATION
  Report Type: Spontaneous
  Country: US (occurrence: US)
  Receive Date: 20220628
  Receipt Date: 20220628
  Transmission Date: 20220721
  Serious: Yes (Disabling, Other)
  Sender: FDA-Public Use
  Company Number: US-PFIZER INC-PV202200007197

PATIENT
  Sex: Male

DRUGS (4)
  1. SINGULAIR [Suspect]
     Active Substance: MONTELUKAST SODIUM
     Indication: Urticaria chronic
     Dosage: UNK
     Route: 048
     Dates: start: 202104, end: 202107
  2. PREDNISONE [Suspect]
     Active Substance: PREDNISONE
     Indication: Urticaria chronic
     Dosage: UNK
     Dates: start: 202104, end: 202107
  3. DOXEPIN [Suspect]
     Active Substance: DOXEPIN
     Indication: Urticaria chronic
     Dosage: UNK
     Dates: start: 202104, end: 202107
  4. XOLAIR [Suspect]
     Active Substance: OMALIZUMAB
     Dosage: INJECTION INTO EACH SHOULDER
     Dates: start: 202106, end: 202111

REACTIONS (7)
  - Depression [Recovered/Resolved]
  - Anxiety [Recovered/Resolved]
  - Abdominal distension [Unknown]
  - Lethargy [Unknown]
  - Drug ineffective for unapproved indication [Unknown]
  - Product prescribing issue [Unknown]
  - Product use in unapproved indication [Unknown]

NARRATIVE: CASE EVENT DATE: 20210101
